FAERS Safety Report 15428832 (Version 1)
Quarter: 2018Q3

REPORT INFORMATION
  Report Type: Spontaneous
  Country: US (occurrence: US)
  Receive Date: 20180919
  Receipt Date: 20180919
  Transmission Date: 20181010
  Serious: No
  Sender: FDA-Public Use
  Company Number: None

PATIENT
  Age: 72 Year
  Sex: Male

DRUGS (1)
  1. OCTREOTIDE SDV 1 ML SDV 50MCG/ML TEVA PARENTERAL MEDICINES [Suspect]
     Active Substance: OCTREOTIDE
     Indication: NEUROENDOCRINE TUMOUR
     Dosage: ?          OTHER STRENGTH:50 UG/ML;?
     Route: 058
     Dates: start: 20180719

REACTIONS (3)
  - Diarrhoea [None]
  - Drug dose omission [None]
  - Device dispensing error [None]

NARRATIVE: CASE EVENT DATE: 20180915
